FAERS Safety Report 6065474-1 (Version None)
Quarter: 2009Q1

REPORT INFORMATION
  Report Type: 
  Country: None (occurrence: None)
  Receive Date: 20090204
  Receipt Date: 20090128
  Transmission Date: 20090719
  Serious: Yes (Other)
  Sender: FDA-Public Use
  Company Number: US-PFIZER INC-2009162867

PATIENT
  Sex: Female
  Weight: 58 kg

DRUGS (7)
  1. LIPITOR [Suspect]
     Indication: BLOOD CHOLESTEROL INCREASED
     Dosage: 40 MG, 1X/DAY
     Dates: start: 20080301, end: 20081201
  2. LIPITOR [Suspect]
     Dosage: 20 MG, 1X/DAY
     Dates: start: 20081201
  3. DILTIAZEM [Concomitant]
     Indication: BLOOD PRESSURE
     Dosage: UNK
  4. ACETYLSALICYLIC ACID [Concomitant]
     Dosage: UNK
  5. PLAVIX [Concomitant]
     Dosage: UNK
  6. COZAAR [Concomitant]
     Dosage: UNK
  7. CARVEDILOL [Concomitant]
     Dosage: UNK

REACTIONS (2)
  - CORONARY ARTERIAL STENT INSERTION [None]
  - FLATULENCE [None]
